FAERS Safety Report 5822463-7 (Version None)
Quarter: 2008Q3

REPORT INFORMATION
  Report Type: 
  Country: None (occurrence: None)
  Receive Date: 20080725
  Receipt Date: 20080204
  Transmission Date: 20090109
  Serious: No
  Sender: FDA-Public Use
  Company Number: US-AMGEN-KDL264247

PATIENT
  Sex: Female
  Weight: 62.2 kg

DRUGS (3)
  1. PROCRIT [Suspect]
     Indication: ANAEMIA
     Route: 058
     Dates: start: 20080128
  2. IRON [Concomitant]
     Route: 048
     Dates: start: 20070101
  3. ASCORBIC ACID [Concomitant]
     Route: 048
     Dates: start: 20070101

REACTIONS (5)
  - ASTHENIA [None]
  - BONE PAIN [None]
  - FATIGUE [None]
  - MYALGIA [None]
  - SENSATION OF HEAVINESS [None]
